FAERS Safety Report 15761640 (Version 2)
Quarter: 2019Q2

REPORT INFORMATION
  Report Type: Spontaneous
  Country: JP (occurrence: JP)
  Receive Date: 20181226
  Receipt Date: 20190513
  Transmission Date: 20190711
  Serious: Yes (Other)
  Sender: FDA-Public Use
  Company Number: JP-GLAXOSMITHKLINE-JP2018JPN224002

PATIENT
  Age: 32 Year
  Sex: Female

DRUGS (6)
  1. MEPTIN [Concomitant]
     Active Substance: PROCATEROL HYDROCHLORIDE
     Indication: ASTHMA
     Dosage: UNK, PRN
     Dates: start: 2015
  2. THEO-DUR [Concomitant]
     Active Substance: THEOPHYLLINE ANHYDROUS
     Dosage: UNK
  3. RELVAR ELLIPTA [Suspect]
     Active Substance: FLUTICASONE FUROATE\VILANTEROL TRIFENATATE
     Indication: ASTHMA
     Dosage: UNK
     Route: 055
     Dates: start: 20181210
  4. FLOMOX (CEFCAPENE PIVOXIL HYDROCHLORIDE) [Concomitant]
     Active Substance: CEFCAPENE PIVOXIL HYDROCHLORIDE
     Dosage: UNK
     Dates: start: 20181204
  5. PL COMBINATION GRANULE [Concomitant]
     Dosage: UNK
     Dates: start: 20181204
  6. ASTOMIN [Concomitant]
     Active Substance: DIMEMORFAN
     Dosage: UNK
     Dates: start: 20181204

REACTIONS (10)
  - Schizophrenia [Unknown]
  - Dyspnoea [Unknown]
  - Nasopharyngitis [Unknown]
  - Therapeutic product effect incomplete [Unknown]
  - Gastroenteritis [Unknown]
  - Nausea [Unknown]
  - Pyrexia [Unknown]
  - White blood cell count increased [Unknown]
  - Malaise [Unknown]
  - Laryngeal pain [Unknown]

NARRATIVE: CASE EVENT DATE: 201812
